FAERS Safety Report 26217957 (Version 1)
Quarter: 2025Q4

REPORT INFORMATION
  Report Type: Spontaneous
  Country: EU (occurrence: EU)
  Receive Date: 20251231
  Receipt Date: 20251231
  Transmission Date: 20260117
  Serious: Yes (Death, Other)
  Sender: ALEXION PHARMACEUTICALS
  Company Number: EU-ASTRAZENECA-202506GLO001578LT

PATIENT
  Age: 14 Year
  Sex: Female

DRUGS (3)
  1. SOLIRIS [Suspect]
     Active Substance: ECULIZUMAB
     Indication: Thrombotic microangiopathy
     Dosage: 900 MILLIGRAM, QW
  2. SUMATRIPTAN [Concomitant]
     Active Substance: SUMATRIPTAN
     Indication: Migraine
     Dosage: UNK
     Route: 065
  3. FOSCAVIR [Concomitant]
     Active Substance: FOSCARNET SODIUM
     Dosage: UNK
     Route: 065

REACTIONS (11)
  - Death [Fatal]
  - Pleural effusion [Unknown]
  - Pericardial effusion [Unknown]
  - Lung consolidation [Unknown]
  - Cytomegalovirus viraemia [Unknown]
  - Pericardial fibrosis [Unknown]
  - Pneumonitis [Unknown]
  - Multiple organ dysfunction syndrome [Unknown]
  - Lung infiltration [Unknown]
  - Off label use [Unknown]
  - Drug effective for unapproved indication [Unknown]
